FAERS Safety Report 5710732-0 (Version None)
Quarter: 2008Q2

REPORT INFORMATION
  Report Type: 
  Country: None (occurrence: None)
  Receive Date: 20080421
  Receipt Date: 20080409
  Transmission Date: 20081010
  Serious: Yes (Other)
  Sender: FDA-Public Use
  Company Number: CA-JNJFOC-20080104320

PATIENT
  Sex: Male
  Weight: 84.8 kg

DRUGS (10)
  1. REMICADE [Suspect]
     Indication: COLITIS ULCERATIVE
     Route: 042
  2. ASACOL [Concomitant]
     Indication: COLITIS ULCERATIVE
     Route: 048
  3. PREDNISONE [Concomitant]
     Indication: COLITIS ULCERATIVE
     Dosage: TAPERING DOSES, 40 MG TO 10 MG
     Route: 048
  4. LOPERAMIDE HCL [Concomitant]
     Indication: DIARRHOEA
     Route: 048
  5. LOPERAMIDE HCL [Concomitant]
     Indication: COLITIS ULCERATIVE
     Dosage: 2 TO 4 TABLETS (2 MG) DAILY AS NEEDED
     Route: 048
  6. TYLENOL W/ CODEINE NO. 3 [Concomitant]
     Indication: MUSCLE SPASMS
     Route: 048
  7. TYLENOL W/ CODEINE NO. 3 [Concomitant]
     Indication: ABDOMINAL PAIN
     Route: 048
  8. TYLENOL W/ CODEINE NO. 3 [Concomitant]
     Indication: COLITIS ULCERATIVE
     Dosage: AS NEEDED
     Route: 048
  9. VENTOLIN [Concomitant]
  10. STEROID INHALER [Concomitant]

REACTIONS (15)
  - ARTHRALGIA [None]
  - COLITIS ULCERATIVE [None]
  - DISTURBANCE IN ATTENTION [None]
  - DIZZINESS [None]
  - EYE PAIN [None]
  - FATIGUE [None]
  - HEADACHE [None]
  - HYPOAESTHESIA [None]
  - HYPOTONIA [None]
  - MEMORY IMPAIRMENT [None]
  - MERALGIA PARAESTHETICA [None]
  - NAUSEA [None]
  - PAIN IN EXTREMITY [None]
  - THERAPEUTIC RESPONSE DECREASED [None]
  - WEIGHT INCREASED [None]
